FAERS Safety Report 10452451 (Version 1)
Quarter: 2014Q3

REPORT INFORMATION
  Report Type: Spontaneous
  Country: GB (occurrence: None)
  Receive Date: 20140911
  Receipt Date: 20140911
  Transmission Date: 20150326
  Serious: Yes (Other)
  Sender: FDA-Public Use
  Company Number: IPC201409-000459

PATIENT
  Age: 52 Year
  Sex: Female

DRUGS (2)
  1. CETIRIZINE [Suspect]
     Active Substance: CETIRIZINE HYDROCHLORIDE
  2. MIZOLASTINE (MIZOLASTINE) (MIZOLASTINE) [Concomitant]

REACTIONS (8)
  - Angioedema [None]
  - Rhinitis [None]
  - Anaphylactic reaction [None]
  - Erythema [None]
  - Bronchospasm [None]
  - Drug hypersensitivity [None]
  - Pruritus [None]
  - Tachycardia [None]
